FAERS Safety Report 5492782-5 (Version None)
Quarter: 2007Q4

REPORT INFORMATION
  Report Type: 
  Country: None (occurrence: None)
  Receive Date: 20071023
  Receipt Date: 20071017
  Transmission Date: 20080405
  Serious: No
  Sender: FDA-Public Use
  Company Number: PHNR2007AU02013

PATIENT
  Sex: Male

DRUGS (1)
  1. TEGRETOL [Suspect]
     Dosage: 200 MG, QD
     Dates: start: 20020101

REACTIONS (6)
  - ALOPECIA [None]
  - ASTHENIA [None]
  - BURNING SENSATION [None]
  - GAIT DISTURBANCE [None]
  - HYPOAESTHESIA [None]
  - MYALGIA [None]
